FAERS Safety Report 7746287 (Version 6)
Quarter: 2013Q1

REPORT INFORMATION
  Report Type: Report from Study
  Country: JP (occurrence: JP)
  Receive Date: 20110103
  Receipt Date: 20130325
  Transmission Date: 20140127
  Serious: Yes (Death, Life-Threatening, Hospitalization, Other)
  Sender: FDA-Public Use
  Company Number: JP-ABBOTT-10P-087-0693557-00

PATIENT
  Age: 71 Year
  Sex: Female
  Weight: 40.5 kg

DRUGS (9)
  1. HUMIRA 40 MG/ 0.8 ML PRE-FILLED SYRINGE [Suspect]
     Indication: RHEUMATOID ARTHRITIS
     Route: 058
     Dates: start: 20090427, end: 20100118
  2. HUMIRA 40 MG/ 0.8 ML PRE-FILLED SYRINGE [Suspect]
     Route: 058
     Dates: start: 20100308, end: 20101002
  3. PREDNISOLONE [Concomitant]
     Indication: RHEUMATOID ARTHRITIS
     Route: 048
     Dates: start: 20091026, end: 20100928
  4. PREDNISOLONE [Concomitant]
     Route: 048
     Dates: start: 20100929
  5. LOXOPROFEN SODIUM HYDRATE [Concomitant]
     Indication: RHEUMATOID ARTHRITIS
     Dates: end: 20101029
  6. URSODEOXYCHOLIC ACID [Concomitant]
     Indication: PRODUCT USED FOR UNKNOWN INDICATION
  7. SENNOSIDE [Concomitant]
     Indication: PRODUCT USED FOR UNKNOWN INDICATION
  8. LAFUTIDINE [Concomitant]
     Indication: PRODUCT USED FOR UNKNOWN INDICATION
     Route: 048
     Dates: start: 20100412
  9. ISONIAZID [Concomitant]
     Indication: ANTIBIOTIC PROPHYLAXIS
     Dates: start: 20090622

REACTIONS (17)
  - Aortic rupture [Fatal]
  - Abdominal pain [Unknown]
  - Peritoneal haematoma [Recovering/Resolving]
  - Back pain [Unknown]
  - Device related infection [Fatal]
  - Vascular graft complication [Fatal]
  - Pyrexia [Unknown]
  - Malaise [Unknown]
  - Back pain [Unknown]
  - Inflammatory marker increased [Unknown]
  - Abscess [Unknown]
  - Haematochezia [Unknown]
  - Anaemia [Unknown]
  - Haematemesis [Unknown]
  - Melaena [Unknown]
  - Aorto-duodenal fistula [Unknown]
  - Gram stain positive [Unknown]
